FAERS Safety Report 7249119-0 (Version None)
Quarter: 2011Q1

REPORT INFORMATION
  Report Type: 
  Country: None (occurrence: None)
  Receive Date: 20110110
  Receipt Date: 20110110
  Transmission Date: 20110831
  Serious: Yes (Other)
  Sender: FDA-Public Use
  Company Number: None

PATIENT
  Age: 62 Year
  Sex: Female
  Weight: 51.2565 kg

DRUGS (1)
  1. TRIAD ALCOHOL PREP TRIAD GROUP INC [Suspect]
     Indication: THERAPEUTIC SKIN CARE TOPICAL
     Dosage: ALCOHOL PREP FOR INJECTION

REACTIONS (2)
  - SLEEP DISORDER [None]
  - INJECTION SITE INFECTION [None]
